FAERS Safety Report 6472220-6 (Version None)
Quarter: 2009Q4

REPORT INFORMATION
  Report Type: 
  Country: None (occurrence: None)
  Receive Date: 20091130
  Receipt Date: 20091111
  Transmission Date: 20100525
  Serious: Yes (Other)
  Sender: FDA-Public Use
  Company Number: 001358

PATIENT
  Sex: Female
  Weight: 60 kg

DRUGS (3)
  1. NEUPRO [Suspect]
     Indication: RESTLESS LEGS SYNDROME
     Dosage: (TRANSDERMAL), (TRANSDERMAL), (8 MG QD TRANSDERMAL)
     Route: 062
     Dates: start: 20090401
  2. NEUPRO [Suspect]
     Indication: RESTLESS LEGS SYNDROME
     Dosage: (TRANSDERMAL), (TRANSDERMAL), (8 MG QD TRANSDERMAL)
     Route: 062
     Dates: start: 20090401
  3. TILIDIN [Concomitant]

REACTIONS (6)
  - APPLICATION SITE ERYTHEMA [None]
  - APPLICATION SITE MASS [None]
  - APPLICATION SITE PRURITUS [None]
  - DEVICE INEFFECTIVE [None]
  - DIZZINESS [None]
  - IMPAIRED HEALING [None]
